FAERS Safety Report 5872004-3 (Version None)
Quarter: 2008Q3

REPORT INFORMATION
  Report Type: 
  Country: None (occurrence: None)
  Receive Date: 20080904
  Receipt Date: 20080904
  Transmission Date: 20090109
  Serious: Yes (Other)
  Sender: FDA-Public Use
  Company Number: None

PATIENT
  Age: 29 Year
  Sex: Female
  Weight: 86.1834 kg

DRUGS (1)
  1. DEPO-PROVERA [Suspect]
     Indication: CONTRACEPTION
     Dosage: 3 MONTHS IM
     Route: 030
     Dates: start: 19950315, end: 20050826

REACTIONS (4)
  - BONE DISORDER [None]
  - FOOT FRACTURE [None]
  - IMPAIRED HEALING [None]
  - STRESS FRACTURE [None]
